FAERS Safety Report 23345503 (Version 2)
Quarter: 2024Q1

REPORT INFORMATION
  Report Type: Other
  Country: GT (occurrence: GT)
  Receive Date: 20231228
  Receipt Date: 20240103
  Transmission Date: 20240410
  Serious: Yes (Death, Other)
  Sender: FDA-Public Use
  Company Number: GT-TOLMAR, INC.-23GT045640

PATIENT
  Age: 78 Year
  Sex: Male

DRUGS (4)
  1. ELIGARD [Suspect]
     Active Substance: LEUPROLIDE ACETATE
     Indication: Prostate cancer
     Dosage: 45 MILLIGRAM, Q 6 MONTH
     Route: 058
     Dates: start: 20230705
  2. ELIGARD [Suspect]
     Active Substance: LEUPROLIDE ACETATE
     Dosage: 45 MILLIGRAM, Q 6 MONTH
     Route: 058
     Dates: start: 20220713
  3. ELIGARD [Suspect]
     Active Substance: LEUPROLIDE ACETATE
     Indication: Prostate cancer
     Dosage: UNK
  4. CLONIXIN LYSINE\PARGEVERINE HYDROCHLORIDE [Suspect]
     Active Substance: CLONIXIN LYSINE\PARGEVERINE HYDROCHLORIDE
     Indication: Product used for unknown indication
     Dosage: UNK

REACTIONS (8)
  - Myocardial infarction [Fatal]
  - Pulmonary pain [Unknown]
  - Chest pain [Unknown]
  - Abdominal pain upper [Unknown]
  - Headache [Unknown]
  - Asthenia [Unknown]
  - Walking disability [Unknown]
  - Malaise [Unknown]

NARRATIVE: CASE EVENT DATE: 20231130
